FAERS Safety Report 25752826 (Version 1)
Quarter: 2025Q3

REPORT INFORMATION
  Report Type: Spontaneous
  Country: EU (occurrence: EU)
  Receive Date: 20250902
  Receipt Date: 20250902
  Transmission Date: 20251020
  Serious: Yes (Hospitalization)
  Sender: MYLAN
  Company Number: None

PATIENT
  Age: 42 Year
  Sex: Male

DRUGS (24)
  1. BUPRENORPHINE [Suspect]
     Active Substance: BUPRENORPHINE
     Indication: Product used for unknown indication
  2. BUPRENORPHINE [Suspect]
     Active Substance: BUPRENORPHINE
     Route: 048
  3. BUPRENORPHINE [Suspect]
     Active Substance: BUPRENORPHINE
     Route: 048
  4. BUPRENORPHINE [Suspect]
     Active Substance: BUPRENORPHINE
  5. BUPRENORPHINE [Suspect]
     Active Substance: BUPRENORPHINE
     Indication: Product used for unknown indication
  6. BUPRENORPHINE [Suspect]
     Active Substance: BUPRENORPHINE
     Route: 045
  7. BUPRENORPHINE [Suspect]
     Active Substance: BUPRENORPHINE
     Route: 045
  8. BUPRENORPHINE [Suspect]
     Active Substance: BUPRENORPHINE
  9. COCAINE [Suspect]
     Active Substance: COCAINE
     Indication: Product used for unknown indication
  10. COCAINE [Suspect]
     Active Substance: COCAINE
     Route: 045
  11. COCAINE [Suspect]
     Active Substance: COCAINE
     Route: 045
  12. COCAINE [Suspect]
     Active Substance: COCAINE
  13. CANNABIS SATIVA SUBSP. INDICA TOP [Suspect]
     Active Substance: CANNABIS SATIVA SUBSP. INDICA TOP
     Indication: Product used for unknown indication
     Dosage: UNK UNK, QW (CONSUMPTION EVERY WEEK)
     Dates: start: 1998
  14. CANNABIS SATIVA SUBSP. INDICA TOP [Suspect]
     Active Substance: CANNABIS SATIVA SUBSP. INDICA TOP
     Dosage: UNK UNK, QW (CONSUMPTION EVERY WEEK)
     Route: 055
     Dates: start: 1998
  15. CANNABIS SATIVA SUBSP. INDICA TOP [Suspect]
     Active Substance: CANNABIS SATIVA SUBSP. INDICA TOP
     Dosage: UNK UNK, QW (CONSUMPTION EVERY WEEK)
     Route: 055
     Dates: start: 1998
  16. CANNABIS SATIVA SUBSP. INDICA TOP [Suspect]
     Active Substance: CANNABIS SATIVA SUBSP. INDICA TOP
     Dosage: UNK UNK, QW (CONSUMPTION EVERY WEEK)
     Dates: start: 1998
  17. ALCOHOL [Suspect]
     Active Substance: ALCOHOL
     Indication: Product used for unknown indication
     Dosage: UNK UNK, QD (35-38 US/DAY) DRINK)
     Dates: start: 1998
  18. ALCOHOL [Suspect]
     Active Substance: ALCOHOL
     Dosage: UNK UNK, QD (35-38 US/DAY) DRINK)
     Route: 048
     Dates: start: 1998
  19. ALCOHOL [Suspect]
     Active Substance: ALCOHOL
     Dosage: UNK UNK, QD (35-38 US/DAY) DRINK)
     Route: 048
     Dates: start: 1998
  20. ALCOHOL [Suspect]
     Active Substance: ALCOHOL
     Dosage: UNK UNK, QD (35-38 US/DAY) DRINK)
     Dates: start: 1998
  21. DIAZEPAM [Suspect]
     Active Substance: DIAZEPAM
     Indication: Product used for unknown indication
  22. DIAZEPAM [Suspect]
     Active Substance: DIAZEPAM
     Route: 048
  23. DIAZEPAM [Suspect]
     Active Substance: DIAZEPAM
     Route: 048
  24. DIAZEPAM [Suspect]
     Active Substance: DIAZEPAM

REACTIONS (2)
  - Drug abuse [Not Recovered/Not Resolved]
  - Poverty [Not Recovered/Not Resolved]
